FAERS Safety Report 6029352-6 (Version None)
Quarter: 2009Q1

REPORT INFORMATION
  Report Type: 
  Country: None (occurrence: None)
  Receive Date: 20090105
  Receipt Date: 20081224
  Transmission Date: 20090719
  Serious: Yes (Other)
  Sender: FDA-Public Use
  Company Number: 2008US002890

PATIENT
  Age: 61 Year
  Sex: Male
  Weight: 64.3 kg

DRUGS (13)
  1. AMBISOME [Suspect]
     Indication: FEBRILE NEUTROPENIA
     Dosage: 150 MG, UID/QD, IV NOS;  75 MG, UID/QD, IV NOS
     Route: 042
     Dates: start: 20080506, end: 20080510
  2. AMBISOME [Suspect]
     Indication: FEBRILE NEUTROPENIA
     Dosage: 150 MG, UID/QD, IV NOS;  75 MG, UID/QD, IV NOS
     Route: 042
     Dates: start: 20080511, end: 20080514
  3. MEROPEN(MEROPENEM TRIHYDRATE) [Suspect]
     Indication: DRUG USE FOR UNKNOWN INDICATION
     Dosage: 2G, UID/QD
     Dates: start: 20080501, end: 20080508
  4. VANCOMYCIN HYDROCHLORIDE [Suspect]
     Indication: DRUG USE FOR UNKNOWN INDICATION
     Dosage: 2G, UID/QD
     Dates: start: 20080504, end: 20080511
  5. DORIBAX [Suspect]
     Indication: DRUG USE FOR UNKNOWN INDICATION
     Dosage: 1.5 G, UID/QD
     Dates: start: 20080509, end: 20080514
  6. FUNGUARD (MICAFUNGIN SODIUM) [Concomitant]
  7. RED BLOOD CELLS [Concomitant]
  8. PLATELETS, CONCENTRATED (PLATELETS, CONCENTRATED) [Concomitant]
  9. IMMUNE GLOBULIN (HUMAN) [Concomitant]
  10. GASTER [Concomitant]
  11. INOVAN (FLURBIPROFEN) [Concomitant]
  12. OMEPRAL (OMEPRAZOLE SODIUM) [Concomitant]
  13. NEUPOGEN [Concomitant]

REACTIONS (3)
  - BLOOD CHOLESTEROL DECREASED [None]
  - BLOOD CREATININE INCREASED [None]
  - HYPERMAGNESAEMIA [None]
